FAERS Safety Report 9662953 (Version 1)
Quarter: 2013Q4

REPORT INFORMATION
  Report Type: Report from Study
  Country: US (occurrence: US)
  Receive Date: 20131031
  Receipt Date: 20131031
  Transmission Date: 20140711
  Serious: Yes (Hospitalization)
  Sender: FDA-Public Use
  Company Number: US-ABBVIE-13P-163-1160049-00

PATIENT
  Sex: Female
  Weight: 81.72 kg

DRUGS (2)
  1. HUMIRA [Suspect]
     Indication: RHEUMATOID ARTHRITIS
     Dates: start: 2002, end: 201211
  2. LEVOTHROID [Concomitant]
     Indication: HYPOTHYROIDISM

REACTIONS (11)
  - Aortic valve stenosis [Recovered/Resolved]
  - Arterial occlusive disease [Recovered/Resolved]
  - Anaemia [Unknown]
  - Arthritis [Recovered/Resolved]
  - Arthritis [Recovered/Resolved]
  - Chest discomfort [Recovered/Resolved]
  - Weight increased [Not Recovered/Not Resolved]
  - Hypertension [Recovered/Resolved]
  - Arthralgia [Not Recovered/Not Resolved]
  - Arthralgia [Not Recovered/Not Resolved]
  - Inflammatory marker increased [Not Recovered/Not Resolved]
